FAERS Safety Report 8315368-3 (Version None)
Quarter: 2012Q1

REPORT INFORMATION
  Report Type: 
  Country: None (occurrence: None)
  Receive Date: 20120315
  Receipt Date: 20110106
  Transmission Date: 20120608
  Serious: Yes (Other)
  Sender: FDA-Public Use
  Company Number: PHHY2010US89333

PATIENT
  Age: 48 Year
  Sex: Female
  Weight: 59 kg

DRUGS (7)
  1. IBUPROFEN [Concomitant]
  2. VITAMIN D [Concomitant]
  3. NEURONTIN [Concomitant]
  4. BACLOFEN [Concomitant]
  5. CARBAMAZEPINE [Concomitant]
  6. GILENYA [Suspect]
     Indication: MULTIPLE SCLEROSIS
     Dosage: 0.5 MG, QD, ORAL
     Route: 048
     Dates: start: 20101216
  7. LORAZEPAM [Concomitant]

REACTIONS (5)
  - MULTIPLE SCLEROSIS RELAPSE [None]
  - DIARRHOEA [None]
  - CHEST PAIN [None]
  - PAIN IN EXTREMITY [None]
  - HEADACHE [None]
